FAERS Safety Report 7307852-6 (Version None)
Quarter: 2011Q1

REPORT INFORMATION
  Report Type: 
  Country: None (occurrence: None)
  Receive Date: 20110223
  Receipt Date: 20101014
  Transmission Date: 20110831
  Serious: No
  Sender: FDA-Public Use
  Company Number: US-BRISTOL-MYERS SQUIBB COMPANY-15334782

PATIENT
  Age: 3 Year
  Sex: Male

DRUGS (4)
  1. TOBRAMYCIN [Concomitant]
  2. CAYSTON [Suspect]
  3. CIPRO [Suspect]
  4. CEFZIL [Suspect]

REACTIONS (1)
  - DRUG INEFFECTIVE [None]
